FAERS Safety Report 5840193-2 (Version None)
Quarter: 2008Q3

REPORT INFORMATION
  Report Type: 
  Country: None (occurrence: None)
  Receive Date: 20080811
  Receipt Date: 20080729
  Transmission Date: 20090109
  Serious: Yes (Other)
  Sender: FDA-Public Use
  Company Number: CH-ROCHE-578331

PATIENT
  Sex: Female
  Weight: 73 kg

DRUGS (5)
  1. MIRCERA [Suspect]
     Indication: ANAEMIA
     Route: 042
     Dates: start: 20080603, end: 20080603
  2. 1 SUSPECTED DRUG [Suspect]
     Indication: ANAEMIA
     Dosage: DRUG REPORTED AS FERINJECT
     Route: 042
     Dates: start: 20080628, end: 20080705
  3. LYRICA [Suspect]
     Route: 048
     Dates: start: 20080523
  4. SORTIS [Concomitant]
     Route: 048
  5. MIMPARA [Concomitant]
     Indication: HYPERPARATHYROIDISM
     Dosage: STRENGTH REPORTED: 30, UNIT NOT PROVIDED.
     Route: 048
     Dates: start: 20080624

REACTIONS (1)
  - EOSINOPHILIA [None]
